FAERS Safety Report 20620750 (Version 1)
Quarter: 2022Q1

REPORT INFORMATION
  Report Type: Spontaneous
  Country: US (occurrence: US)
  Receive Date: 20220322
  Receipt Date: 20220322
  Transmission Date: 20220423
  Serious: Yes (Other)
  Sender: FDA-Public Use
  Company Number: US-GLAXOSMITHKLINE-US2022GSK048052

PATIENT
  Sex: Female

DRUGS (4)
  1. ZANTAC [Suspect]
     Active Substance: RANITIDINE HYDROCHLORIDE
     Indication: Gastric ulcer
     Dosage: 150 MG, AS NEEDED EVERY OTHER DAY
     Route: 065
     Dates: start: 199501, end: 200701
  2. ZANTAC [Suspect]
     Active Substance: RANITIDINE HYDROCHLORIDE
     Indication: Gastric ulcer
     Dosage: 150 MG, AS NEEDED EVERY OTHER DAY
     Route: 065
     Dates: start: 199501, end: 200701
  3. RANITIDINE [Suspect]
     Active Substance: RANITIDINE
     Indication: Gastric ulcer
     Dosage: UNK, AS NEEDED
     Route: 065
     Dates: start: 199501, end: 200701
  4. RANITIDINE [Suspect]
     Active Substance: RANITIDINE
     Indication: Gastric ulcer
     Dosage: UNK, AS NEEDED
     Route: 065
     Dates: start: 199501, end: 200701

REACTIONS (1)
  - Oesophageal carcinoma [Unknown]
